FAERS Safety Report 9226655 (Version 1)
Quarter: 2013Q2

REPORT INFORMATION
  Report Type: Spontaneous
  Country: US (occurrence: US)
  Receive Date: 20130412
  Receipt Date: 20130412
  Transmission Date: 20140414
  Serious: No
  Sender: FDA-Public Use
  Company Number: US-PFIZER INC-2013115208

PATIENT
  Age: 40 Year
  Sex: Female
  Weight: 88.44 kg

DRUGS (5)
  1. LYRICA [Suspect]
     Indication: NEURALGIA
     Dosage: 150 MG, 2X/DAY
     Route: 048
     Dates: start: 2009
  2. LYRICA [Suspect]
     Indication: MUSCLE SPASMS
  3. NEURONTIN [Suspect]
     Indication: NEURALGIA
     Dosage: 600 MG, 3X/DAY
     Route: 048
     Dates: start: 2007
  4. NEURONTIN [Suspect]
     Indication: MUSCLE SPASMS
  5. CYMBALTA [Concomitant]
     Dosage: 60 MG, 1X/DAY

REACTIONS (2)
  - Back injury [Unknown]
  - Pain [Unknown]
